FAERS Safety Report 24297343 (Version 1)
Quarter: 2024Q3

REPORT INFORMATION
  Report Type: Spontaneous
  Country: US (occurrence: None)
  Receive Date: 20240906
  Receipt Date: 20240906
  Transmission Date: 20241016
  Serious: No
  Sender: Public
  Company Number: None

PATIENT
  Age: 38 Year
  Sex: Female

DRUGS (1)
  1. ACTEMRA [Suspect]
     Active Substance: TOCILIZUMAB
     Indication: Rheumatoid arthritis
     Dosage: 162 MG EVERY 2 WEEKS SUBCUTANEOUS
     Route: 058
     Dates: start: 20240528

REACTIONS (2)
  - Injection site irritation [None]
  - Injection site rash [None]

NARRATIVE: CASE EVENT DATE: 20240819
